FAERS Safety Report 20335572 (Version 2)
Quarter: 2022Q1

REPORT INFORMATION
  Report Type: Spontaneous
  Country: None (occurrence: JP)
  Receive Date: 20220114
  Receipt Date: 20220114
  Transmission Date: 20220423
  Serious: No
  Sender: FDA-Public Use
  Company Number: JP-SERB S.A.S.-2123934

PATIENT
  Age: 69 Year
  Sex: Male

DRUGS (1)
  1. CYANOKIT [Suspect]
     Active Substance: HYDROXOCOBALAMIN
     Indication: Product used for unknown indication
     Route: 041
     Dates: start: 20210310, end: 20210310

REACTIONS (2)
  - Injection site extravasation [Unknown]
  - Product container issue [Unknown]

NARRATIVE: CASE EVENT DATE: 20210310
